FAERS Safety Report 4396824-X (Version None)
Quarter: 2004Q3

REPORT INFORMATION
  Report Type: 
  Country: None (occurrence: None)
  Receive Date: 20040713
  Receipt Date: 20040713
  Transmission Date: 20050211
  Serious: Yes (Other)
  Sender: FDA-Public Use
  Company Number: None

PATIENT
  Sex: Male
  Weight: 122.2 kg

DRUGS (4)
  1. VANCOMYCIN [Suspect]
     Indication: WOUND INFECTION
     Dosage: 1500 MG IV QD
     Route: 042
     Dates: start: 20040521, end: 20040624
  2. VANCOMYCIN [Suspect]
  3. HEPARIN [Concomitant]
  4. NACL [Concomitant]

REACTIONS (6)
  - BACK PAIN [None]
  - HEADACHE [None]
  - LABORATORY TEST ABNORMAL [None]
  - NAUSEA [None]
  - NECK PAIN [None]
  - VOMITING [None]
